FAERS Safety Report 9530106 (Version 2)
Quarter: 2013Q4

REPORT INFORMATION
  Report Type: Spontaneous
  Country: US (occurrence: US)
  Receive Date: 20130917
  Receipt Date: 20131016
  Transmission Date: 20140711
  Serious: Yes (Other)
  Sender: FDA-Public Use
  Company Number: US-PFIZER INC-2013265974

PATIENT
  Age: 57 Year
  Sex: Male
  Weight: 95.24 kg

DRUGS (1)
  1. PRISTIQ [Suspect]
     Indication: DEPRESSION
     Dosage: 50 MG, DAILY
     Dates: start: 201205, end: 201209

REACTIONS (2)
  - Glaucoma [Unknown]
  - Epinephrine increased [Unknown]
